FAERS Safety Report 14896648 (Version 7)
Quarter: 2019Q2

REPORT INFORMATION
  Report Type: Spontaneous
  Country: US (occurrence: US)
  Receive Date: 20180515
  Receipt Date: 20190402
  Transmission Date: 20190711
  Serious: Yes (Hospitalization, Other)
  Sender: FDA-Public Use
  Company Number: US-PFIZER INC-2018195155

PATIENT
  Age: 75 Year
  Sex: Female
  Weight: 72.56 kg

DRUGS (3)
  1. IBRANCE [Suspect]
     Active Substance: PALBOCICLIB
     Indication: BREAST CANCER METASTATIC
     Dosage: 125 MG, CYCLIC (DAILY 1-21 DAY OF 28 DAYS/ D1-21, Q 28 DAYS )
     Route: 048
     Dates: start: 20180426
  2. IBRANCE [Suspect]
     Active Substance: PALBOCICLIB
     Dosage: 125 MG, CYCLIC (DAILY 1-21 DAY OF 28 DAYS/ D1-21, Q 28 DAYS )
     Route: 048
  3. IBRANCE [Suspect]
     Active Substance: PALBOCICLIB
     Dosage: 125 MG, CYCLIC (DAILY 1-21 DAY OF 28 DAYS/ D1-21, Q 28 DAYS )
     Route: 048

REACTIONS (11)
  - Dry skin [Unknown]
  - Nausea [Unknown]
  - Vomiting [Unknown]
  - Skin exfoliation [Unknown]
  - Constipation [Unknown]
  - Hypersensitivity [Unknown]
  - Respiratory disorder [Unknown]
  - Fatigue [Unknown]
  - Pruritus [Unknown]
  - Pain [Unknown]
  - Pulmonary oedema [Unknown]

NARRATIVE: CASE EVENT DATE: 20180511
